FAERS Safety Report 7994038-5 (Version None)
Quarter: 2011Q4

REPORT INFORMATION
  Report Type: 
  Country: None (occurrence: None)
  Receive Date: 20111123
  Receipt Date: 20110923
  Transmission Date: 20120403
  Serious: No
  Sender: FDA-Public Use
  Company Number: 338141

PATIENT
  Age: 61 Year
  Sex: Male

DRUGS (2)
  1. METFORMIN HCL [Concomitant]
  2. VICTOZA [Suspect]
     Indication: TYPE 2 DIABETES MELLITUS
     Dosage: 1.8 MG, QD, SUBCUTANEOUS, 0.3MG, SUBCUTANEOUS
     Route: 058

REACTIONS (6)
  - BACK PAIN [None]
  - DECREASED APPETITE [None]
  - FATIGUE [None]
  - PAIN [None]
  - APATHY [None]
  - SWELLING [None]
